FAERS Safety Report 9918106 (Version 2)
Quarter: 2014Q1

REPORT INFORMATION
  Report Type: Spontaneous
  Country: US (occurrence: US)
  Receive Date: 20140223
  Receipt Date: 20140223
  Transmission Date: 20141002
  Serious: No
  Sender: FDA-Public Use
  Company Number: US-ALLERGAN-1302935US

PATIENT
  Sex: Female

DRUGS (1)
  1. TAZORAC CREAM 0.1% [Suspect]
     Indication: SOLAR LENTIGO
     Route: 061

REACTIONS (4)
  - Pruritus [Recovered/Resolved]
  - Feeling hot [Recovered/Resolved]
  - Off label use [Unknown]
  - Urticaria [Recovered/Resolved]
